FAERS Safety Report 4521593-X (Version None)
Quarter: 2004Q4

REPORT INFORMATION
  Report Type: 
  Country: None (occurrence: None)
  Receive Date: 20041208
  Receipt Date: 20041208
  Transmission Date: 20050328
  Serious: Yes (Other)
  Sender: FDA-Public Use
  Company Number: None

PATIENT
  Sex: Female
  Weight: 80.7403 kg

DRUGS (5)
  1. LEUCOVORIN   350 MG VIAL  BEDFORD [Suspect]
     Indication: COLON CANCER METASTATIC
     Dosage: 380 MG   EVERY 2-3 WEEK   INTRAVENOU
     Route: 042
     Dates: start: 20040524, end: 20041206
  2. LEUCOVORIN   350 MG VIAL  BEDFORD [Suspect]
     Indication: METASTASES TO LIVER
     Dosage: 380 MG   EVERY 2-3 WEEK   INTRAVENOU
     Route: 042
     Dates: start: 20040524, end: 20041206
  3. FLUORURACIL [Concomitant]
  4. DOLASETRON [Concomitant]
  5. DEXAMETHASONE [Concomitant]

REACTIONS (4)
  - ERYTHEMA [None]
  - INFUSION RELATED REACTION [None]
  - PRURITUS [None]
  - URTICARIA [None]
